FAERS Safety Report 11312327 (Version 1)
Quarter: 2015Q3

REPORT INFORMATION
  Report Type: Report from Study
  Country: US (occurrence: US)
  Receive Date: 20150727
  Receipt Date: 20150727
  Transmission Date: 20151125
  Serious: Yes (Hospitalization, Other)
  Sender: FDA-Public Use
  Company Number: US-GILEAD-2015-0164929

PATIENT
  Age: 65 Year
  Sex: Male

DRUGS (19)
  1. LOSARTAN. [Concomitant]
     Active Substance: LOSARTAN
  2. METOPROLOL TARTRAS [Concomitant]
  3. ALLOPURINOL. [Concomitant]
     Active Substance: ALLOPURINOL
  4. REVATIO [Concomitant]
     Active Substance: SILDENAFIL CITRATE
  5. MYCOPHENOLATE [Concomitant]
     Active Substance: MYCOPHENOLIC ACID
  6. OMEPRAZOLE. [Concomitant]
     Active Substance: OMEPRAZOLE
  7. WARFARIN [Concomitant]
     Active Substance: WARFARIN
  8. CELECOXIB. [Concomitant]
     Active Substance: CELECOXIB
  9. FUROSEMIDE. [Concomitant]
     Active Substance: FUROSEMIDE
  10. SILDENAFIL. [Concomitant]
     Active Substance: SILDENAFIL
  11. HYDROCODONE/APAP [Concomitant]
     Active Substance: ACETAMINOPHEN\HYDROCODONE BITARTRATE
  12. METFORMIN [Concomitant]
     Active Substance: METFORMIN HYDROCHLORIDE
  13. ENOXAPARIN [Concomitant]
     Active Substance: ENOXAPARIN
  14. AMBRISENTAN [Suspect]
     Active Substance: AMBRISENTAN
     Indication: PULMONARY ARTERIAL HYPERTENSION
     Dosage: 10 MG, QD
     Route: 065
     Dates: start: 20150313
  15. DOCUSATE [Concomitant]
     Active Substance: DOCUSATE
  16. MONTELUKAST [Concomitant]
     Active Substance: MONTELUKAST SODIUM
  17. POTASSIUM CHLORIDE. [Concomitant]
     Active Substance: POTASSIUM CHLORIDE
  18. PREDNISONE. [Concomitant]
     Active Substance: PREDNISONE
  19. CELEBREX [Concomitant]
     Active Substance: CELECOXIB

REACTIONS (3)
  - Unevaluable event [Unknown]
  - Cellulitis [Unknown]
  - Oedema peripheral [Unknown]
